FAERS Safety Report 8503390-3 (Version None)
Quarter: 2012Q3

REPORT INFORMATION
  Report Type: 
  Country: None (occurrence: None)
  Receive Date: 20120711
  Receipt Date: 20120706
  Transmission Date: 20120928
  Serious: No
  Sender: FDA-Public Use
  Company Number: US-PFIZER INC-2012134245

PATIENT
  Sex: Female
  Weight: 63.492 kg

DRUGS (2)
  1. ESTRING [Suspect]
     Indication: URINARY INCONTINENCE
     Dosage: UNK
  2. IBUPROFEN (ADVIL) [Suspect]
     Indication: PAIN
     Dosage: UNK

REACTIONS (3)
  - ABDOMINAL DISTENSION [None]
  - DRUG INEFFECTIVE [None]
  - COUGH [None]
